FAERS Safety Report 8616208-5 (Version None)
Quarter: 2012Q3

REPORT INFORMATION
  Report Type: 
  Country: None (occurrence: None)
  Receive Date: 20120823
  Receipt Date: 20120810
  Transmission Date: 20120928
  Serious: Yes (Other)
  Sender: FDA-Public Use
  Company Number: JP-ROCHE-1092231

PATIENT
  Age: 79 Year
  Sex: Female

DRUGS (4)
  1. CYCLOPHOSPHAMIDE [Concomitant]
     Indication: B-CELL LYMPHOMA
  2. VINCRISTINE SULFATE [Concomitant]
     Indication: B-CELL LYMPHOMA
  3. PREDNISOLONE [Concomitant]
     Indication: B-CELL LYMPHOMA
  4. RITUXIMAB [Suspect]
     Indication: B-CELL LYMPHOMA

REACTIONS (1)
  - EXTRANODAL MARGINAL ZONE B-CELL LYMPHOMA (MALT TYPE) [None]
